FAERS Safety Report 17618601 (Version 1)
Quarter: 2020Q2

REPORT INFORMATION
  Report Type: Spontaneous
  Country: GR (occurrence: GR)
  Receive Date: 20200402
  Receipt Date: 20200402
  Transmission Date: 20200713
  Serious: Yes (Hospitalization, Other)
  Sender: FDA-Public Use
  Company Number: GR-AMGEN-GRCSP2020050078

PATIENT
  Age: 43 Year
  Sex: Male

DRUGS (17)
  1. IMMUNOGLOBULIN [IMMUNOGLOBULIN HUMAN NORMAL] [Concomitant]
     Active Substance: HUMAN IMMUNOGLOBULIN G
     Dosage: 20 GRAM, QD (FOR 4 DAYS)
     Route: 042
  2. METHYLPREDNISOLONE. [Concomitant]
     Active Substance: METHYLPREDNISOLONE
     Dosage: 8 MILLIGRAM, QD
  3. MEROPENEM [MEROPENEM SODIUM CARBONATE] [Concomitant]
     Dosage: 2 GRAM, BID
  4. APIXABAN [Concomitant]
     Active Substance: APIXABAN
  5. DEXAMETHASONE. [Concomitant]
     Active Substance: DEXAMETHASONE
     Dosage: 10 MILLIGRAM/SQ. METER, QD
  6. TEICOPLANIN [Concomitant]
     Active Substance: TEICOPLANIN
  7. ACYCLOVIR [ACICLOVIR] [Concomitant]
     Active Substance: ACYCLOVIR
     Dosage: 750 MILLIGRAM, TID
  8. MOXIFLOXACIN. [Concomitant]
     Active Substance: MOXIFLOXACIN
     Dosage: 400 MILLIGRAM, QD
  9. FILGRASTIM [Suspect]
     Active Substance: FILGRASTIM
     Indication: PRODUCT USED FOR UNKNOWN INDICATION
     Dosage: UNK
     Route: 065
  10. PIPERACILLIN AND TAZOBACTAM [Concomitant]
     Active Substance: PIPERACILLIN SODIUM\TAZOBACTAM SODIUM
  11. TRIMETHOPRIM SULFAMETHOXAZOLE [Concomitant]
     Active Substance: SULFAMETHOXAZOLE\TRIMETHOPRIM
     Dosage: 960 MILLIGRAM, TID
  12. BISOPROLOL [Concomitant]
     Active Substance: BISOPROLOL
  13. AMPICILLIN [Concomitant]
     Active Substance: AMPICILLIN
     Dosage: 2 GRAM, QID
  14. GENTAMYCIN [GENTAMICIN] [Concomitant]
     Active Substance: GENTAMICIN
     Dosage: 280 MILLIGRAM, QD
  15. LINEZOLID. [Concomitant]
     Active Substance: LINEZOLID
  16. AMPHOTERICIN B. [Concomitant]
     Active Substance: AMPHOTERICIN B
     Dosage: 3 MILLIGRAM/KILOGRAM  (TOTAL DOSE 40MG/KG)
  17. VALGANCICLOVIR. [Concomitant]
     Active Substance: VALGANCICLOVIR
     Dosage: 900 MILLIGRAM, BID

REACTIONS (6)
  - Bacillus infection [Unknown]
  - Haemophagocytic lymphohistiocytosis [Recovered/Resolved]
  - Leishmaniasis [Unknown]
  - Cytomegalovirus infection [Unknown]
  - Encephalitis brain stem [Unknown]
  - Listeriosis [Unknown]
